FAERS Safety Report 21484568 (Version 1)
Quarter: 2022Q4

REPORT INFORMATION
  Report Type: Spontaneous
  Country: FR (occurrence: FR)
  Receive Date: 20221020
  Receipt Date: 20221020
  Transmission Date: 20230112
  Serious: Yes (Hospitalization)
  Sender: FDA-Public Use
  Company Number: None

PATIENT
  Age: 68 Year
  Sex: Female
  Weight: 71 kg

DRUGS (11)
  1. METFORMIN [Suspect]
     Active Substance: METFORMIN HYDROCHLORIDE
     Indication: Type 2 diabetes mellitus
     Dosage: METFORMINE; UNIT DOSE: 1000MG; FREQUENCY TIME : 12HOURS
  2. PANTOPRAZOLE [Suspect]
     Active Substance: PANTOPRAZOLE
     Indication: Gastroduodenal ulcer
     Dosage: UNIT DOSE: 40MG; FREQ TIME: 1DAY
  3. SITAGLIPTIN [Suspect]
     Active Substance: SITAGLIPTIN
     Indication: Type 2 diabetes mellitus
     Dosage: SITAGLIPTINE; UNIT DOSE: 50MG; FREQUENCY TIME : 12HOURS
  4. BISOPROLOL [Suspect]
     Active Substance: BISOPROLOL
     Indication: Product used for unknown indication
     Dosage: BISOPROLOL (FUMARATE DE); UNIT DOSE: 1.25MG; FREQUENCY TIME : 1DAY
  5. AMITRIPTYLINE HYDROCHLORIDE [Suspect]
     Active Substance: AMITRIPTYLINE HYDROCHLORIDE
     Indication: Product used for unknown indication
     Dosage: UNIT DOSE: 25MG; FREQUENCY TIME : 1DAY
  6. RAMIPRIL [Suspect]
     Active Substance: RAMIPRIL
     Indication: Product used for unknown indication
     Dosage: UNIT DOSE: 2.5MG; FREQUENCY TIME : 1DAY
  7. LEVOTHYROXINE [Suspect]
     Active Substance: LEVOTHYROXINE
     Indication: Hypothyroidism
     Dosage: UNIT DOSE: 75MCG; FREQUENCY TIME :1DAY
  8. ATORVASTATIN [Suspect]
     Active Substance: ATORVASTATIN
     Indication: Product used for unknown indication
     Dosage: UNIT DOSE: 40MG; FREQ TIME: 1DAY ; ATORVASTATINE
  9. BECLOMETHASONE [Suspect]
     Active Substance: BECLOMETHASONE
     Indication: Product used for unknown indication
     Dosage: UNIT DOSE: 1DF ; FREQ TIME: 12 HOURS
  10. OXAZEPAM [Suspect]
     Active Substance: OXAZEPAM
     Indication: Product used for unknown indication
     Dosage: UNIT DOSE: 50MG; FREQ TIME: 1DAY
  11. ACETAMINOPHEN [Suspect]
     Active Substance: ACETAMINOPHEN
     Indication: Product used for unknown indication
     Dosage: UNIT DOSE: 1000MG; FREQ TIME: 1 AS REQUIRED

REACTIONS (1)
  - Small fibre neuropathy [Not Recovered/Not Resolved]

NARRATIVE: CASE EVENT DATE: 20220420
